FAERS Safety Report 24551431 (Version 1)
Quarter: 2024Q4

REPORT INFORMATION
  Report Type: Spontaneous
  Country: CA (occurrence: CA)
  Receive Date: 20241026
  Receipt Date: 20241026
  Transmission Date: 20250115
  Serious: Yes (Other)
  Sender: AUROBINDO
  Company Number: CA-AUROBINDO-AUR-APL-2024-006062

PATIENT
  Age: 70 Year
  Sex: Male

DRUGS (5)
  1. SUNITINIB [Suspect]
     Active Substance: SUNITINIB
     Indication: Renal cancer
     Dosage: UNK
     Route: 065
  2. SUNITINIB [Suspect]
     Active Substance: SUNITINIB
     Dosage: UNK UNK, ONCE A DAY
     Route: 065
  3. IRBESARTAN [Concomitant]
     Active Substance: IRBESARTAN
     Indication: Hypertension
     Dosage: UNK
     Route: 065
  4. CHLORTHALIDONE [Concomitant]
     Active Substance: CHLORTHALIDONE
     Indication: Hypertension
     Dosage: UNK
     Route: 065
  5. HEPARIN [Concomitant]
     Active Substance: HEPARIN SODIUM
     Indication: Pulmonary embolism
     Dosage: UNK
     Route: 065

REACTIONS (7)
  - Thrombotic microangiopathy [Recovering/Resolving]
  - Hypothyroidism [Recovered/Resolved]
  - Gastrointestinal disorder [Recovered/Resolved]
  - Palmar-plantar erythrodysaesthesia syndrome [Recovered/Resolved]
  - Stomatitis [Recovered/Resolved]
  - Renal-limited thrombotic microangiopathy [Recovered/Resolved]
  - Mouth ulceration [Unknown]
